FAERS Safety Report 18211022 (Version 1)
Quarter: 2020Q3

REPORT INFORMATION
  Report Type: Spontaneous
  Country: PL (occurrence: PL)
  Receive Date: 20200830
  Receipt Date: 20200830
  Transmission Date: 20201103
  Serious: Yes (Hospitalization, Other)
  Sender: FDA-Public Use
  Company Number: NVSC2020PL236798

PATIENT
  Age: 15 Year
  Sex: Male

DRUGS (4)
  1. CYCLOPHOSPHAMIDE. [Suspect]
     Active Substance: CYCLOPHOSPHAMIDE
     Indication: ACUTE LYMPHOCYTIC LEUKAEMIA
     Dosage: UNK
     Route: 065
  2. MERCAPTOPURINE. [Suspect]
     Active Substance: MERCAPTOPURINE
     Indication: ACUTE LYMPHOCYTIC LEUKAEMIA
     Dosage: UNK
     Route: 048
  3. CYTARABINE. [Suspect]
     Active Substance: CYTARABINE
     Indication: ACUTE LYMPHOCYTIC LEUKAEMIA
     Dosage: UNK, FOUR BLOCKS
     Route: 065
  4. METHOTREXATE. [Suspect]
     Active Substance: METHOTREXATE
     Indication: ACUTE LYMPHOCYTIC LEUKAEMIA
     Dosage: UNK
     Route: 037

REACTIONS (10)
  - Haemophagocytic lymphohistiocytosis [Recovered/Resolved]
  - Hypoproteinaemia [Unknown]
  - Pyrexia [Unknown]
  - Pancytopenia [Unknown]
  - General physical health deterioration [Recovered/Resolved]
  - Hypofibrinogenaemia [Unknown]
  - Hepatosplenomegaly [Unknown]
  - Hypoalbuminaemia [Unknown]
  - Xanthogranuloma [Recovered/Resolved]
  - Second primary malignancy [Unknown]
